FAERS Safety Report 8076679-2 (Version None)
Quarter: 2012Q1

REPORT INFORMATION
  Report Type: 
  Country: None (occurrence: None)
  Receive Date: 20120127
  Receipt Date: 20120116
  Transmission Date: 20120608
  Serious: Yes (Other)
  Sender: FDA-Public Use
  Company Number: US-RB-033745-12

PATIENT
  Age: 77 Year
  Sex: Female

DRUGS (3)
  1. MUCINEX D [Suspect]
     Indication: SINUS CONGESTION
     Dosage: MAY 2010 TILL OCT 2010
     Route: 048
     Dates: start: 20100501
  2. VITAMIN TAB [Concomitant]
     Indication: PRODUCT USED FOR UNKNOWN INDICATION
  3. VERAPAMIL [Concomitant]
     Indication: HYPERTENSION

REACTIONS (3)
  - HEADACHE [None]
  - INCORRECT DRUG ADMINISTRATION DURATION [None]
  - BLOOD PRESSURE INCREASED [None]
